FAERS Safety Report 19919319 (Version 2)
Quarter: 2021Q4

REPORT INFORMATION
  Report Type: Report from Study
  Country: EG (occurrence: EG)
  Receive Date: 20211004
  Receipt Date: 20211112
  Transmission Date: 20220303
  Serious: Yes (Other)
  Sender: FDA-Public Use
  Company Number: EG-NOVARTISPH-NVSC2021EG221122

PATIENT
  Sex: Male

DRUGS (13)
  1. ENTRESTO [Suspect]
     Active Substance: SACUBITRIL\VALSARTAN
     Indication: Cardiac failure
     Dosage: 1 DF, BID (100 MG)
     Route: 048
     Dates: start: 2018
  2. ENTRESTO [Suspect]
     Active Substance: SACUBITRIL\VALSARTAN
     Dosage: 50 MG, BID
     Route: 048
     Dates: start: 2018, end: 2020
  3. ENTRESTO [Suspect]
     Active Substance: SACUBITRIL\VALSARTAN
     Dosage: 1 DF, BID (100 MG)
     Route: 048
     Dates: start: 2020
  4. ENTRESTO [Suspect]
     Active Substance: SACUBITRIL\VALSARTAN
     Dosage: 200 MG, BID
     Route: 065
     Dates: start: 20211010
  5. CARVEDILOL [Concomitant]
     Active Substance: CARVEDILOL
     Indication: Cardiac failure
     Dosage: 1 DF, BID
     Route: 048
  6. IVABRADINE [Concomitant]
     Active Substance: IVABRADINE
     Indication: Thrombosis prophylaxis
     Dosage: 1 DF, BID
     Route: 048
  7. EXAMIDE [Concomitant]
     Indication: Diuretic therapy
     Dosage: 1 DF, QD
     Route: 048
  8. EXAMIDE [Concomitant]
     Indication: Prophylaxis
  9. CARDISTAT [Concomitant]
     Indication: Prophylaxis
     Dosage: 1 DF, QD (FOR 6 DAYS PER WEEK)
     Route: 048
  10. CARDISTAT [Concomitant]
     Indication: Cardiac disorder
  11. ASPIRIN [Concomitant]
     Active Substance: ASPIRIN
     Indication: Anticoagulant therapy
     Dosage: 1 DF, QD
     Route: 048
  12. ASPIRIN [Concomitant]
     Active Substance: ASPIRIN
     Indication: Prophylaxis
  13. INSULIN NOS [Concomitant]
     Active Substance: INSULIN NOS
     Indication: Diabetes mellitus
     Dosage: UNK, QD (ANOTHER ORAL TABLET MEDICATION FOR DIABETES)
     Route: 058

REACTIONS (12)
  - Chest pain [Recovered/Resolved]
  - Dyspnoea exertional [Recovered/Resolved]
  - Chest pain [Recovered/Resolved]
  - Dyspnoea exertional [Recovered/Resolved]
  - Dyspnoea [Recovered/Resolved]
  - Gait disturbance [Recovered/Resolved]
  - Abdominal distension [Recovered/Resolved]
  - Haemoptysis [Recovered/Resolved]
  - Oxygen saturation decreased [Recovered/Resolved]
  - Abdominal rigidity [Recovered/Resolved]
  - Dysstasia [Recovered/Resolved]
  - Abdominal pain upper [Recovered/Resolved]

NARRATIVE: CASE EVENT DATE: 20200101
